FAERS Safety Report 12423539 (Version 1)
Quarter: 2016Q2

REPORT INFORMATION
  Report Type: Spontaneous
  Country: US (occurrence: US)
  Receive Date: 20160601
  Receipt Date: 20160601
  Transmission Date: 20160815
  Serious: No
  Sender: FDA-Public Use
  Company Number: US-NOVEN PHARMACEUTICALS, INC.-US2015000428

PATIENT
  Age: 17 Year
  Sex: Male

DRUGS (1)
  1. DAYTRANA [Suspect]
     Active Substance: METHYLPHENIDATE
     Indication: ATTENTION DEFICIT/HYPERACTIVITY DISORDER
     Dosage: 20 MG, CUTTING THE PATCH INTO HALF
     Route: 062
     Dates: start: 20150612, end: 201506

REACTIONS (10)
  - Inappropriate schedule of drug administration [Unknown]
  - Product quality issue [Unknown]
  - Disturbance in attention [Unknown]
  - Product adhesion issue [Unknown]
  - Drug prescribing error [Unknown]
  - Incorrect drug administration duration [Unknown]
  - Drug dose omission [Unknown]
  - Wrong technique in product usage process [Unknown]
  - Drug effect decreased [Unknown]
  - Somnolence [Unknown]

NARRATIVE: CASE EVENT DATE: 201506
